FAERS Safety Report 18784320 (Version 2)
Quarter: 2021Q1

REPORT INFORMATION
  Report Type: Report from Study
  Country: US (occurrence: US)
  Receive Date: 20210125
  Receipt Date: 20210204
  Transmission Date: 20210419
  Serious: Yes (Hospitalization)
  Sender: FDA-Public Use
  Company Number: US-ROCHE-2719830

PATIENT
  Age: 62 Year
  Sex: Male
  Weight: 99.96 kg

DRUGS (31)
  1. HYDROCHLOROTHIAZIDE;TELMISARTAN [Concomitant]
     Active Substance: HYDROCHLOROTHIAZIDE\TELMISARTAN
     Dates: start: 2000, end: 20201014
  2. JANUVIA [Concomitant]
     Active Substance: SITAGLIPTIN PHOSPHATE
     Dates: start: 2005
  3. TYLENOL EXTRA STRENGTH [Concomitant]
     Active Substance: ACETAMINOPHEN
     Dates: start: 2019
  4. NEXIUM [Concomitant]
     Active Substance: ESOMEPRAZOLE MAGNESIUM
     Dates: start: 20201016
  5. NEOSPORINE [Concomitant]
     Active Substance: GRAMICIDIN\NEOMYCIN SULFATE\POLYMYXIN B SULFATE
     Dates: start: 20201012
  6. MORPHINE [Concomitant]
     Active Substance: MORPHINE
     Dates: start: 20201205, end: 20201205
  7. BEVACIZUMAB. [Suspect]
     Active Substance: BEVACIZUMAB
     Indication: RENAL CELL CARCINOMA
     Dosage: ON 12/NOV/2020, RECEIVED LAST DOSE OF BEVACIZUMAB PRIOR TO ONSET OF ADVERSE EVENT
     Route: 042
     Dates: start: 20200723, end: 20201112
  8. DOXYCYCLINE. [Concomitant]
     Active Substance: DOXYCYCLINE
     Dates: start: 20201022, end: 20201029
  9. PREDNISONE. [Concomitant]
     Active Substance: PREDNISONE
     Dates: start: 20201016, end: 20201022
  10. ATEZOLIZUMAB. [Suspect]
     Active Substance: ATEZOLIZUMAB
     Indication: RENAL CELL CARCINOMA
     Dosage: ON 03/SEP/2020, RECEIVED MOST RECENT DOSE OF ATEZOLIZUMAB PRIOR TO THE ADVERSE EVENT
     Route: 042
     Dates: start: 20200723, end: 20200903
  11. EGANELISIB. [Suspect]
     Active Substance: EGANELISIB
     Indication: RENAL CELL CARCINOMA
     Dosage: ON 23/SEP/2020, RECEIVED LAST DOSE PRIOR TO ONSET OF ADVERSE EVENT
     Route: 048
     Dates: start: 20200723, end: 20200923
  12. GABAPENTIN. [Concomitant]
     Active Substance: GABAPENTIN
     Dates: start: 2015
  13. OXYCONTIN [Concomitant]
     Active Substance: OXYCODONE HYDROCHLORIDE
     Dates: start: 20201203, end: 20201206
  14. PERCOCET [Concomitant]
     Active Substance: ACETAMINOPHEN\OXYCODONE HYDROCHLORIDE
     Dates: start: 20201217
  15. GLIMEPIRIDE. [Concomitant]
     Active Substance: GLIMEPIRIDE
     Dates: start: 2013
  16. SODIUM BICARBONATE. [Concomitant]
     Active Substance: SODIUM BICARBONATE
     Dates: start: 2000
  17. LIDOCAINE. [Concomitant]
     Active Substance: LIDOCAINE
     Dates: start: 20001005, end: 20201203
  18. HYDROCORTISONE. [Concomitant]
     Active Substance: HYDROCORTISONE
     Dates: start: 20201210, end: 20201222
  19. DILTIAZEM. [Concomitant]
     Active Substance: DILTIAZEM
     Dates: start: 2017
  20. METFORMIN [Concomitant]
     Active Substance: METFORMIN HYDROCHLORIDE
     Dates: start: 2005
  21. VITAMIN D [ERGOCALCIFEROL] [Concomitant]
     Active Substance: ERGOCALCIFEROL
     Dates: start: 2018
  22. FISH OIL [Concomitant]
     Active Substance: FISH OIL
     Dates: start: 2000
  23. DIPHENHYDRAMINE. [Concomitant]
     Active Substance: DIPHENHYDRAMINE
     Dates: start: 20200827
  24. TELMISARTAN. [Concomitant]
     Active Substance: TELMISARTAN
     Dates: start: 20201015
  25. ROSUVASTATIN. [Concomitant]
     Active Substance: ROSUVASTATIN
     Dates: start: 2008
  26. TURMERIC [Concomitant]
     Active Substance: HERBALS\TURMERIC
     Dates: start: 2018
  27. ELIQUIS [Concomitant]
     Active Substance: APIXABAN
     Dates: start: 2017
  28. TUMS [Concomitant]
     Active Substance: CALCIUM CARBONATE
     Dates: start: 2000
  29. FLEXERIL [Concomitant]
     Active Substance: CYCLOBENZAPRINE HYDROCHLORIDE
     Dates: start: 20201205, end: 20201206
  30. NORMAL SALINE [Concomitant]
     Active Substance: SODIUM CHLORIDE
     Dates: start: 20201222, end: 20201222
  31. ZOFRAN [Concomitant]
     Active Substance: ONDANSETRON HYDROCHLORIDE
     Dates: start: 20200810

REACTIONS (1)
  - Anal abscess [Not Recovered/Not Resolved]

NARRATIVE: CASE EVENT DATE: 20201113
